FAERS Safety Report 6144831-9 (Version None)
Quarter: 2009Q2

REPORT INFORMATION
  Report Type: 
  Country: None (occurrence: None)
  Receive Date: 20090401
  Receipt Date: 20090401
  Transmission Date: 20091009
  Serious: Yes (Hospitalization)
  Sender: FDA-Public Use
  Company Number: None

PATIENT
  Age: 58 Year
  Sex: Male
  Weight: 93.4 kg

DRUGS (1)
  1. DOXYCYCLINE [Suspect]
     Indication: INFECTION
     Dosage: 100 MG EVERYDAY PO
     Route: 048
     Dates: start: 20090112, end: 20090120

REACTIONS (9)
  - DEHYDRATION [None]
  - FACIAL PARESIS [None]
  - HYPOKALAEMIA [None]
  - HYPONATRAEMIA [None]
  - LEUKOCYTOSIS [None]
  - PARALYSIS [None]
  - PETECHIAE [None]
  - RENAL FAILURE [None]
  - VASCULITIS [None]
